FAERS Safety Report 7955592-2 (Version None)
Quarter: 2011Q4

REPORT INFORMATION
  Report Type: 
  Country: None (occurrence: None)
  Receive Date: 20111202
  Receipt Date: 20111123
  Transmission Date: 20120403
  Serious: Yes (Hospitalization)
  Sender: FDA-Public Use
  Company Number: BE-ASTRAZENECA-2011SE71539

PATIENT
  Age: 56 Year
  Sex: Female

DRUGS (10)
  1. SEROQUEL XR [Suspect]
     Route: 048
     Dates: start: 20110801
  2. PRAZEPAM [Concomitant]
     Dosage: 1/2
     Dates: start: 20110912
  3. XANAX [Concomitant]
     Dosage: 1/2 OF 20 MG, TOTAL 10 MG AT NIGHT
     Dates: start: 20110501, end: 20110101
  4. SEROQUEL XR [Suspect]
     Route: 048
     Dates: start: 20110801
  5. BISOPROLOL FUMARATE [Concomitant]
     Dosage: 1/2 DAILY
     Dates: start: 20110912
  6. CYMBALTA [Concomitant]
     Dates: start: 20110912
  7. SIPRALEXA [Concomitant]
     Dosage: TWO TIMES A DAY
     Dates: start: 20110501
  8. SEROQUEL XR [Suspect]
     Indication: DEPRESSED MOOD
     Dosage: 50 MG TWO TIMES A DAY PLUS HALF OF 200 MG AT NIGHT
     Route: 048
  9. SEROQUEL XR [Suspect]
     Indication: SLEEP DISORDER
     Dosage: 50 MG TWO TIMES A DAY PLUS HALF OF 200 MG AT NIGHT
     Route: 048
  10. ANTICHOLESTEROL DRUG [Concomitant]

REACTIONS (2)
  - PULMONARY EMBOLISM [None]
  - INTENTIONAL DRUG MISUSE [None]
